FAERS Safety Report 10399318 (Version 1)
Quarter: 2014Q1

REPORT INFORMATION
  Report Type: Spontaneous
  Country: US (occurrence: None)
  Receive Date: 20130815
  Receipt Date: 20130815
  Transmission Date: 20141002
  Serious: Yes (Hospitalization, Other)
  Sender: FDA-Public Use
  Company Number: ADR-2012-01269

PATIENT
  Age: 54 Year
  Sex: Female

DRUGS (2)
  1. BACLOFEN INTRATHECAL (BACLOFEN INJECTION) 2000 MCG/ML [Suspect]
     Route: 037
  2. BACLOFEN INTRATHECAL (BACLOFEN INJECTION) 2000 MCG/ML [Suspect]
     Indication: MULTIPLE SCLEROSIS
     Route: 037

REACTIONS (3)
  - Muscle spasticity [None]
  - Incorrect route of drug administration [None]
  - Muscle spasms [None]
